FAERS Safety Report 10794195 (Version 1)
Quarter: 2015Q1

REPORT INFORMATION
  Report Type: Spontaneous
  Country: BR (occurrence: BR)
  Receive Date: 20150213
  Receipt Date: 20150213
  Transmission Date: 20150721
  Serious: Yes (Other)
  Sender: FDA-Public Use
  Company Number: BR-GLAXOSMITHKLINE-BR2015GSK017605

PATIENT
  Age: 76 Year
  Sex: Male
  Weight: 69 kg

DRUGS (3)
  1. COMBODART [Suspect]
     Active Substance: DUTASTERIDE\TAMSULOSIN
     Indication: PROSTATIC ATROPHY
     Dosage: 1 UNK, QD
     Route: 048
     Dates: end: 20150208
  2. VITAMIN SUPPLEMENT [Concomitant]
     Active Substance: VITAMINS
     Indication: MULTI-VITAMIN DEFICIENCY
     Dosage: 1 UNK, QD
     Route: 048
     Dates: start: 20080209
  3. ACETYLSALICYLIC ACID [Concomitant]
     Active Substance: ASPIRIN
     Indication: THROMBOSIS PROPHYLAXIS
     Dosage: 80 MG, QD
     Route: 048
     Dates: start: 20000209

REACTIONS (3)
  - Optic ischaemic neuropathy [Not Recovered/Not Resolved]
  - Eyelid disorder [Not Recovered/Not Resolved]
  - Genital burning sensation [Recovering/Resolving]

NARRATIVE: CASE EVENT DATE: 20150208
